FAERS Safety Report 5428051-9 (Version None)
Quarter: 2007Q3

REPORT INFORMATION
  Report Type: 
  Country: None (occurrence: None)
  Receive Date: 20070828
  Receipt Date: 20070821
  Transmission Date: 20080115
  Serious: Yes (Hospitalization)
  Sender: FDA-Public Use
  Company Number: US-ROXANE LABORATORIES, INC-2007-BP-19592RO

PATIENT
  Age: 71 Year
  Sex: Male

DRUGS (6)
  1. AZATHIOPRINE [Suspect]
     Indication: CROHN'S DISEASE
     Route: 048
  2. PREDNISONE TAB [Suspect]
     Indication: CROHN'S DISEASE
     Route: 048
  3. PREDNISONE TAB [Suspect]
     Route: 048
  4. MESALAMINE [Suspect]
     Indication: CROHN'S DISEASE
  5. INFLIXIMAB [Suspect]
     Indication: CROHN'S DISEASE
     Route: 042
  6. CYCLOSPORINE [Suspect]
     Indication: CROHN'S DISEASE
     Route: 042

REACTIONS (12)
  - ABDOMINAL PAIN [None]
  - BLOOD ALBUMIN DECREASED [None]
  - COUGH [None]
  - CROHN'S DISEASE [None]
  - CRYPTOGENIC ORGANISING PNEUMONIA [None]
  - DIARRHOEA [None]
  - DRUG INEFFECTIVE [None]
  - DYSPNOEA [None]
  - LEUKOCYTOSIS [None]
  - PULMONARY TOXICITY [None]
  - PYREXIA [None]
  - WEIGHT DECREASED [None]
